FAERS Safety Report 4816534-1 (Version None)
Quarter: 2005Q4

REPORT INFORMATION
  Report Type: 
  Country: None (occurrence: None)
  Receive Date: 20051101
  Receipt Date: 20051013
  Transmission Date: 20060501
  Serious: Yes (Life-Threatening)
  Sender: FDA-Public Use
  Company Number: PHBS2005JP15298

PATIENT
  Age: 80 Year
  Sex: Female

DRUGS (3)
  1. LUDIOMIL [Suspect]
     Indication: DEPRESSION
     Dosage: 10 MG/D
     Route: 048
     Dates: start: 19951129, end: 20050830
  2. HMG COA REDUCTASE INHIBITORS [Concomitant]
  3. LIPOVAS [Suspect]
     Dosage: 5 MG/D
     Route: 048
     Dates: start: 19990101, end: 20050830

REACTIONS (9)
  - ASTHENIA [None]
  - BLOOD CREATINE PHOSPHOKINASE INCREASED [None]
  - BLOOD CREATININE INCREASED [None]
  - BODY TEMPERATURE INCREASED [None]
  - HAEMODIALYSIS [None]
  - MYOGLOBIN URINE PRESENT [None]
  - OLIGURIA [None]
  - RENAL FAILURE ACUTE [None]
  - RHABDOMYOLYSIS [None]
